FAERS Safety Report 8949674 (Version 1)
Quarter: 2012Q4

REPORT INFORMATION
  Report Type: 
  Country: US (occurrence: US)
  Receive Date: 20121206
  Receipt Date: 20121206
  Transmission Date: 20130627
  Serious: Yes (Hospitalization, Other)
  Sender: FDA-Public Use
  Company Number: US-SANOFI-AVENTIS-2012SA087017

PATIENT
  Age: 70 Year
  Sex: Male
  Weight: 107 kg

DRUGS (1)
  1. LOVENOX [Suspect]
     Indication: DEEP VEIN THROMBOSIS
     Dosage: Dose: about 100 mg once daily
     Route: 065
     Dates: start: 201211

REACTIONS (2)
  - Large intestine perforation [Not Recovered/Not Resolved]
  - Injection site pain [Not Recovered/Not Resolved]
